FAERS Safety Report 9018302 (Version 1)
Quarter: 2013Q1

REPORT INFORMATION
  Report Type: Spontaneous
  Country: US (occurrence: None)
  Receive Date: 20130111
  Receipt Date: 20130111
  Transmission Date: 20140127
  Serious: No
  Sender: FDA-Public Use
  Company Number: None

PATIENT
  Age: 57 Year
  Sex: Male

DRUGS (6)
  1. REVLIMID [Suspect]
     Indication: PLASMA CELL MYELOMA
     Dosage: 15 MG DAILY X21 /20D BY MOUTH
     Route: 048
     Dates: start: 201207
  2. DEXAMETHASONE [Concomitant]
  3. WARFARIN [Concomitant]
  4. METHADONE [Concomitant]
  5. HYDROMORPHONE [Concomitant]
  6. MVI [Concomitant]

REACTIONS (1)
  - Pancytopenia [None]
